FAERS Safety Report 11135640 (Version 2)
Quarter: 2016Q2

REPORT INFORMATION
  Report Type: Report from Study
  Country: US (occurrence: US)
  Receive Date: 20150526
  Receipt Date: 20160516
  Transmission Date: 20160815
  Serious: No
  Sender: FDA-Public Use
  Company Number: US-MALLINCKRODT-T201502286

PATIENT
  Age: 48 Year
  Sex: Female

DRUGS (1)
  1. REPOSITORY CORTICOTROPIN INJECTION [Suspect]
     Active Substance: CORTICOTROPIN
     Indication: MULTIPLE SCLEROSIS RELAPSE
     Dosage: 1MG, QD
     Route: 058
     Dates: start: 20150415, end: 20150420

REACTIONS (5)
  - Drug effect decreased [Unknown]
  - Insomnia [Unknown]
  - Injection site pruritus [Unknown]
  - Decreased appetite [Unknown]
  - Flushing [Unknown]

NARRATIVE: CASE EVENT DATE: 20150415
